FAERS Safety Report 8507303-X (Version None)
Quarter: 2012Q3

REPORT INFORMATION
  Report Type: 
  Country: None (occurrence: None)
  Receive Date: 20120712
  Receipt Date: 20120703
  Transmission Date: 20120928
  Serious: No
  Sender: FDA-Public Use
  Company Number: US-009507513-1207USA000868

PATIENT

DRUGS (4)
  1. SIMVASTATIN TABLETS, USP [Concomitant]
  2. ZOLPIDEM TARTRATE [Concomitant]
  3. NASONEX [Suspect]
     Indication: HYPERSENSITIVITY
     Dosage: 50 MICROGRAM, BID
     Dates: start: 20120622
  4. NEXIUM [Concomitant]

REACTIONS (2)
  - DRUG DOSE OMISSION [None]
  - PRODUCT QUALITY ISSUE [None]
